FAERS Safety Report 7778052-0 (Version None)
Quarter: 2011Q3

REPORT INFORMATION
  Report Type: 
  Country: None (occurrence: None)
  Receive Date: 20110926
  Receipt Date: 20110921
  Transmission Date: 20111222
  Serious: Yes (Other)
  Sender: FDA-Public Use
  Company Number: US-VERTEX PHARMACEUTICALS INC.-AE-2011-001729

PATIENT
  Sex: Female
  Weight: 62.652 kg

DRUGS (6)
  1. INCIVEK [Suspect]
     Indication: HEPATITIS C
     Route: 048
     Dates: start: 20110727
  2. SPRINTEC [Concomitant]
     Indication: HORMONE REPLACEMENT THERAPY
     Route: 048
  3. RIBAVIRIN [Concomitant]
     Indication: HEPATITIS C
     Route: 048
     Dates: start: 20110727
  4. PEGASYS [Concomitant]
     Indication: HEPATITIS C
     Route: 058
     Dates: start: 20110727
  5. WELLBUTRIN [Concomitant]
     Indication: DEPRESSION
     Route: 048
  6. THYROXIN [Concomitant]
     Indication: HYPOTHYROIDISM
     Route: 048

REACTIONS (7)
  - PYREXIA [None]
  - NAUSEA [None]
  - HAEMOGLOBIN DECREASED [None]
  - FEELING ABNORMAL [None]
  - VISION BLURRED [None]
  - CHEST PAIN [None]
  - FATIGUE [None]
